FAERS Safety Report 14529290 (Version 1)
Quarter: 2018Q1

REPORT INFORMATION
  Report Type: Spontaneous
  Country: CZ (occurrence: CZ)
  Receive Date: 20180214
  Receipt Date: 20180214
  Transmission Date: 20180509
  Serious: Yes (Other)
  Sender: FDA-Public Use
  Company Number: CZ-BAUSCH-BL-2018-004245

PATIENT
  Age: 76 Year
  Sex: Male

DRUGS (6)
  1. FOLINIC ACID [Suspect]
     Active Substance: LEUCOVORIN
     Indication: RECTAL ADENOCARCINOMA
     Dosage: 1ST CYCLE
     Route: 042
     Dates: start: 201405, end: 201405
  2. FLUOROURACIL. [Suspect]
     Active Substance: FLUOROURACIL
     Dosage: 12TH CYCLE
     Route: 042
     Dates: start: 201410, end: 201410
  3. FLUOROURACIL. [Suspect]
     Active Substance: FLUOROURACIL
     Indication: RECTAL ADENOCARCINOMA
     Dosage: 1ST CYCLE
     Route: 042
     Dates: start: 201405, end: 201405
  4. FOLINIC ACID [Suspect]
     Active Substance: LEUCOVORIN
     Dosage: 12TH CYCLE
     Route: 042
     Dates: start: 201410, end: 201410
  5. IRINOTECAN [Suspect]
     Active Substance: IRINOTECAN
     Indication: RECTAL ADENOCARCINOMA
     Dosage: 1ST CYCLE
     Route: 042
     Dates: start: 201405, end: 201405
  6. IRINOTECAN [Suspect]
     Active Substance: IRINOTECAN
     Dosage: 12TH CYCLE
     Route: 042
     Dates: start: 201410, end: 201410

REACTIONS (1)
  - Lymphadenopathy [Unknown]

NARRATIVE: CASE EVENT DATE: 201502
